FAERS Safety Report 19828482 (Version 3)
Quarter: 2021Q4

REPORT INFORMATION
  Report Type: Spontaneous
  Country: US (occurrence: US)
  Receive Date: 20210914
  Receipt Date: 20211019
  Transmission Date: 20220304
  Serious: No
  Sender: FDA-Public Use
  Company Number: US-TEVA-2021-US-1952146

PATIENT
  Sex: Female

DRUGS (1)
  1. IMATINIB. [Suspect]
     Active Substance: IMATINIB MESYLATE
     Route: 065

REACTIONS (9)
  - Alopecia [Unknown]
  - Stomatitis [Unknown]
  - Abdominal discomfort [Unknown]
  - Dysgeusia [Unknown]
  - Cardiac disorder [Unknown]
  - Product use complaint [Unknown]
  - Product taste abnormal [Unknown]
  - Product quality issue [Unknown]
  - Product coating issue [Unknown]
